FAERS Safety Report 8007934-X (Version None)
Quarter: 2011Q4

REPORT INFORMATION
  Report Type: 
  Country: None (occurrence: None)
  Receive Date: 20111227
  Receipt Date: 20111220
  Transmission Date: 20120403
  Serious: Yes (Other)
  Sender: FDA-Public Use
  Company Number: JP-PFIZER INC-2011309239

PATIENT
  Age: 75 Year
  Sex: Male

DRUGS (11)
  1. CYANOCOBALAMIN [Concomitant]
     Dosage: UNK
     Route: 048
  2. MIYA BM [Concomitant]
     Dosage: 3 G DAILY
     Route: 048
  3. EPADEL [Concomitant]
     Dosage: 900 MG DAILY
     Route: 048
     Dates: start: 20111122
  4. CEFAZOLIN SODIUM [Concomitant]
     Dosage: 12 MG DAILY
     Route: 048
     Dates: start: 20111122
  5. TOLTERODINE TARTRATE [Suspect]
     Indication: HYPERTONIC BLADDER
     Dosage: 4 MG DAILY
     Route: 048
     Dates: start: 20111122, end: 20111201
  6. SHAKUYAKU-KANZO-TO [Concomitant]
     Dosage: 7.5 G DAILY
     Route: 048
  7. LENDORMIN [Concomitant]
     Dosage: 0.5 MG DAILY
     Route: 048
  8. MAGMITT [Concomitant]
     Dosage: 1320 MG DAILY
     Route: 048
  9. FLIVAS [Concomitant]
     Dosage: 50 MG DAILY
     Route: 048
  10. FK [Concomitant]
     Dosage: 3.9 G DAILY
     Route: 048
  11. YODEL S [Concomitant]
     Dosage: 160 MG DAILY
     Route: 048

REACTIONS (1)
  - URINARY RETENTION [None]
